FAERS Safety Report 11230913 (Version 1)
Quarter: 2015Q2

REPORT INFORMATION
  Report Type: Spontaneous
  Country: US (occurrence: None)
  Receive Date: 20150629
  Receipt Date: 20150629
  Transmission Date: 20150821
  Serious: No
  Sender: FDA-Public Use
  Company Number: None

PATIENT
  Age: 1 Month
  Sex: Male
  Weight: 11.34 kg

DRUGS (2)
  1. NYSTATIN. [Suspect]
     Active Substance: NYSTATIN
     Indication: FUNGAL INFECTION
     Dates: start: 20150625
  2. NYSTATIN. [Suspect]
     Active Substance: NYSTATIN
     Indication: DERMATITIS DIAPER
     Dates: start: 20150625

REACTIONS (4)
  - Skin irritation [None]
  - Erythema [None]
  - Pruritus [None]
  - Skin burning sensation [None]

NARRATIVE: CASE EVENT DATE: 20150626
